FAERS Safety Report 21434721 (Version 7)
Quarter: 2022Q4

REPORT INFORMATION
  Report Type: Report from Study
  Country: JP (occurrence: JP)
  Receive Date: 20221010
  Receipt Date: 20221201
  Transmission Date: 20230113
  Serious: Yes (Hospitalization)
  Sender: FDA-Public Use
  Company Number: JP-NOVARTISPH-NVSC2022JP225251

PATIENT
  Age: 17 Year
  Sex: Female
  Weight: 49 kg

DRUGS (5)
  1. TAFINLAR [Suspect]
     Active Substance: DABRAFENIB MESYLATE
     Indication: Glioma
     Dosage: 200 MG, BID
     Route: 048
     Dates: start: 20200424
  2. TAFINLAR [Suspect]
     Active Substance: DABRAFENIB MESYLATE
     Dosage: 200 MG, BID
     Route: 048
     Dates: start: 20221122
  3. MEKINIST [Suspect]
     Active Substance: TRAMETINIB DIMETHYL SULFOXIDE
     Indication: Glioma
     Dosage: 1.5 MG, QD
     Route: 048
     Dates: start: 20200424
  4. MEKINIST [Suspect]
     Active Substance: TRAMETINIB DIMETHYL SULFOXIDE
     Dosage: 1.0 MG, QD
     Route: 048
     Dates: start: 20221028
  5. MEKINIST [Suspect]
     Active Substance: TRAMETINIB DIMETHYL SULFOXIDE
     Dosage: 1.5 MG, QD
     Route: 048
     Dates: start: 20221122

REACTIONS (1)
  - Optic perineuritis [Recovering/Resolving]

NARRATIVE: CASE EVENT DATE: 20220912
